FAERS Safety Report 24450615 (Version 2)
Quarter: 2024Q4

REPORT INFORMATION
  Report Type: Spontaneous
  Country: US (occurrence: US)
  Receive Date: 20241017
  Receipt Date: 20241101
  Transmission Date: 20250114
  Serious: No
  Sender: INCYTE
  Company Number: US-INCYTE CORPORATION-2024IN010693

PATIENT

DRUGS (1)
  1. JAKAFI [Suspect]
     Active Substance: RUXOLITINIB
     Indication: Graft versus host disease
     Dosage: TAKE 1 10 MILLIGRAM TABLET EVERY OTHER DAY ALTERNATING WITH ONE-HALF TABLET (5 MG( EVERY OTHER DAY
     Route: 065

REACTIONS (1)
  - Wrong technique in product usage process [Unknown]
